FAERS Safety Report 9127053 (Version 1)
Quarter: 2013Q1

REPORT INFORMATION
  Report Type: Spontaneous
  Country: US (occurrence: US)
  Receive Date: 20130228
  Receipt Date: 20130228
  Transmission Date: 20140127
  Serious: Yes (Death)
  Sender: FDA-Public Use
  Company Number: PHEH2013US004790

PATIENT
  Age: 60 Year
  Sex: Female

DRUGS (19)
  1. AFINITOR [Suspect]
     Dosage: 10 MG, EVERY DAY
     Route: 048
  2. EXEMESTANE [Concomitant]
     Dosage: 25 MG, UNK
  3. LANSOPRAZOLE [Concomitant]
     Dosage: 30 MG, UNK
  4. NEURONTIN [Concomitant]
     Dosage: 100 MG, UNK
  5. OXYCONTIN [Concomitant]
     Dosage: 30 MG, UNK
  6. MULTIVITAMINS [Concomitant]
  7. CALCIUM +D [Concomitant]
  8. DIGESTIVE ENZYMES [Concomitant]
  9. MAGNESIUM GLYCINATE [Concomitant]
     Dosage: 200 MG, UNK
  10. VITAMIN D [Concomitant]
     Dosage: 1000 U, UNK
  11. MELATONIN [Concomitant]
     Dosage: 1 MG, UNK
  12. MEGACE ORAL SUSPENSION [Concomitant]
     Dosage: 40 MG/ML, UNK
  13. OMEGA 3 COMPLEX [Concomitant]
     Dosage: 1000 MG, UNK
  14. VITAMIN B 6 [Concomitant]
     Dosage: 50 MG, UNK
  15. COQ-10 [Concomitant]
     Dosage: 100 MG, UNK
  16. BELLADONNA AND DERIVATIVES [Concomitant]
  17. PROCHLORPERAZ [Concomitant]
     Dosage: 5 MG/ML, UNK
  18. IBUPROFEN [Concomitant]
     Dosage: 200 MG, UNK
  19. ZOFRAN [Concomitant]
     Dosage: 24 MG, UNK

REACTIONS (1)
  - Death [Fatal]
